FAERS Safety Report 10560816 (Version 2)
Quarter: 2014Q4

REPORT INFORMATION
  Report Type: Spontaneous
  Country: CN (occurrence: CN)
  Receive Date: 20141103
  Receipt Date: 20141126
  Transmission Date: 20150529
  Serious: Yes (Hospitalization)
  Sender: FDA-Public Use
  Company Number: CN-JNJFOC-20141012991

PATIENT
  Age: 84 Year
  Sex: Male

DRUGS (3)
  1. TYLENOL COLD + COUGH [Suspect]
     Active Substance: ACETAMINOPHEN\CHLORPHENIRAMINE MALEATE\DEXTROMETHORPHAN HYDROBROMIDE\PSEUDOEPHEDRINE HYDROCHLORIDE
     Indication: NASOPHARYNGITIS
     Route: 048
     Dates: start: 20131229, end: 20140105
  2. TROLLIUS CHINENSIS BUNGE ORAL SOLUTION [Suspect]
     Active Substance: HERBALS
     Indication: NASOPHARYNGITIS
     Route: 048
     Dates: start: 20131229, end: 20140105
  3. HERBA HOUTTUYNIAE [Suspect]
     Active Substance: HERBALS
     Indication: NASOPHARYNGITIS
     Route: 048
     Dates: start: 20131229, end: 20140105

REACTIONS (1)
  - Stevens-Johnson syndrome [Recovering/Resolving]

NARRATIVE: CASE EVENT DATE: 20140105
